FAERS Safety Report 8615223-5 (Version None)
Quarter: 2012Q3

REPORT INFORMATION
  Report Type: 
  Country: None (occurrence: None)
  Receive Date: 20120823
  Receipt Date: 20120816
  Transmission Date: 20120928
  Serious: No
  Sender: FDA-Public Use
  Company Number: US-BAYER-2012-086957

PATIENT
  Sex: Female

DRUGS (2)
  1. MIRENA [Suspect]
     Indication: MIGRAINE
     Dosage: 20 MCG/24HR, UNK
     Route: 015
     Dates: start: 20120601
  2. TOPAMAX [Concomitant]
     Indication: MIGRAINE

REACTIONS (1)
  - MIGRAINE [None]
